FAERS Safety Report 6373392-4 (Version None)
Quarter: 2009Q3

REPORT INFORMATION
  Report Type: 
  Country: None (occurrence: None)
  Receive Date: 20090924
  Receipt Date: 20090717
  Transmission Date: 20100115
  Serious: No
  Sender: FDA-Public Use
  Company Number: US-ASTRAZENECA-2009UW07200

PATIENT
  Age: 35 Year
  Sex: Male

DRUGS (2)
  1. SEROQUEL [Suspect]
     Route: 048
     Dates: start: 20081115
  2. XANAX [Concomitant]

REACTIONS (4)
  - ANXIETY [None]
  - FATIGUE [None]
  - INSOMNIA [None]
  - NIGHTMARE [None]
